FAERS Safety Report 23454676 (Version 1)
Quarter: 2024Q1

REPORT INFORMATION
  Report Type: Report from Study
  Country: CA (occurrence: CA)
  Receive Date: 20240130
  Receipt Date: 20240130
  Transmission Date: 20240410
  Serious: Yes (Other)
  Sender: FDA-Public Use
  Company Number: CA-TEVA-VS-3147462

PATIENT
  Age: 51 Year
  Sex: Female

DRUGS (7)
  1. CYCLOSPORINE [Suspect]
     Active Substance: CYCLOSPORINE
     Indication: Prophylaxis against graft versus host disease
     Route: 065
  2. THYMOCYTE IMMUNE GLOBULIN NOS [Suspect]
     Active Substance: THYMOCYTE IMMUNE GLOBULIN NOS
     Indication: Prophylaxis against graft versus host disease
     Route: 065
  3. CYCLOPHOSPHAMIDE [Suspect]
     Active Substance: CYCLOPHOSPHAMIDE
     Indication: Bone marrow conditioning regimen
     Route: 065
  4. CIDOFOVIR [Suspect]
     Active Substance: CIDOFOVIR
     Indication: BK virus infection
     Route: 065
  5. TACROLIMUS [Suspect]
     Active Substance: TACROLIMUS
     Indication: Chronic graft versus host disease
     Route: 065
  6. FOSCARNET [Suspect]
     Active Substance: FOSCARNET
     Indication: Herpes simplex
     Route: 065
  7. METHOTREXATE [Suspect]
     Active Substance: METHOTREXATE
     Indication: Prophylaxis against graft versus host disease
     Route: 065

REACTIONS (6)
  - Drug ineffective [Unknown]
  - Acidosis hyperchloraemic [Unknown]
  - Metabolic acidosis [Unknown]
  - Hypouricaemia [Unknown]
  - Acute kidney injury [Recovering/Resolving]
  - Renal tubular injury [Recovering/Resolving]
